FAERS Safety Report 4557888-3 (Version None)
Quarter: 2005Q1

REPORT INFORMATION
  Report Type: 
  Country: None (occurrence: None)
  Receive Date: 20050121
  Receipt Date: 20040115
  Transmission Date: 20050727
  Serious: No
  Sender: FDA-Public Use
  Company Number: US-BRISTOL-MYERS SQUIBB COMPANY-12478988

PATIENT
  Age: 55 Year
  Sex: Female
  Weight: 43 kg

DRUGS (3)
  1. SERZONE [Suspect]
     Indication: ANXIETY
     Route: 048
  2. KLONOPIN [Concomitant]
     Dosage: TAKEN AT BEDTIME
  3. IMMUNE GLOBULIN INTRAVENOUS (HUMAN) [Concomitant]
     Route: 042
     Dates: start: 20030601, end: 20030801

REACTIONS (3)
  - BLOOD BILIRUBIN INCREASED [None]
  - FAECES DISCOLOURED [None]
  - LIVER TENDERNESS [None]
